FAERS Safety Report 6258283-1 (Version None)
Quarter: 2009Q3

REPORT INFORMATION
  Report Type: 
  Country: None (occurrence: None)
  Receive Date: 20090707
  Receipt Date: 20090629
  Transmission Date: 20100115
  Serious: Yes (Other)
  Sender: FDA-Public Use
  Company Number: CA-BAYER-200925131NA

PATIENT
  Age: 38 Year
  Sex: Female

DRUGS (3)
  1. YASMIN [Suspect]
     Indication: DRUG USE FOR UNKNOWN INDICATION
     Route: 048
  2. DIABETES MEDICATIONS NOS [Suspect]
  3. TWINRIX [Suspect]
     Dosage: SUSPENSION INTRAMUSCULAR  THERAPY DURATION ONCE

REACTIONS (7)
  - ARTHRALGIA [None]
  - HEPATIC ENZYME ABNORMAL [None]
  - HEPATIC STEATOSIS [None]
  - MUSCULOSKELETAL STIFFNESS [None]
  - MYALGIA [None]
  - MYOSITIS [None]
  - RED BLOOD CELL SEDIMENTATION RATE INCREASED [None]
